FAERS Safety Report 10879312 (Version 2)
Quarter: 2015Q1

REPORT INFORMATION
  Report Type: Spontaneous
  Country: ES (occurrence: ES)
  Receive Date: 20150302
  Receipt Date: 20150324
  Transmission Date: 20150721
  Serious: Yes (Other)
  Sender: FDA-Public Use
  Company Number: ES-GLAXOSMITHKLINE-ES2015024071

PATIENT
  Age: 42 Year
  Sex: Female

DRUGS (7)
  1. VALDOXAN [Suspect]
     Active Substance: AGOMELATINE
     Route: 048
     Dates: start: 2014, end: 20140715
  2. RIVOTRIL [Suspect]
     Active Substance: CLONAZEPAM
     Route: 048
     Dates: start: 2014, end: 20140715
  3. ABILIFY [Suspect]
     Active Substance: ARIPIPRAZOLE
     Route: 048
     Dates: start: 2014, end: 20140715
  4. SEROQUEL [Suspect]
     Active Substance: QUETIAPINE FUMARATE
     Indication: SCHIZOPHRENIA
     Route: 048
     Dates: start: 2014, end: 20140715
  5. VENLAFAXINE [Suspect]
     Active Substance: VENLAFAXINE HYDROCHLORIDE
     Indication: SCHIZOAFFECTIVE DISORDER
     Dosage: 225 MG AL DIA
     Route: 048
     Dates: start: 201212, end: 20140715
  6. LAMOTRIGINE. [Suspect]
     Active Substance: LAMOTRIGINE
     Indication: SCHIZOAFFECTIVE DISORDER
     Dosage: 100 MG  1-0-1+1/2
     Route: 048
     Dates: start: 20110211, end: 20140715
  7. ELONTRIL 150 MG EXTENDED RELEASE TABLETS ,30TABLETS [Suspect]
     Active Substance: BUPROPION HYDROCHLORIDE
     Indication: SCHIZOAFFECTIVE DISORDER
     Route: 048
     Dates: start: 2014, end: 20140715

REACTIONS (2)
  - Inappropriate antidiuretic hormone secretion [Recovered/Resolved]
  - Hyponatraemia [Recovered/Resolved]

NARRATIVE: CASE EVENT DATE: 20140715
